FAERS Safety Report 4972635-9 (Version None)
Quarter: 2006Q1

REPORT INFORMATION
  Report Type: 
  Country: None (occurrence: None)
  Receive Date: 20060216
  Receipt Date: 20051215
  Transmission Date: 20060701
  Serious: No
  Sender: FDA-Public Use
  Company Number: TPA2005A01676

PATIENT
  Age: 5 Decade
  Sex: Male

DRUGS (3)
  1. ROZEREM [Suspect]
     Indication: INSOMNIA
     Dosage: 8 MG HS PER ORAL
     Route: 048
     Dates: start: 20051208, end: 20051215
  2. LAMICTAL [Concomitant]
  3. ZOCOR [Concomitant]

REACTIONS (1)
  - RASH [None]
